FAERS Safety Report 9125740 (Version 1)
Quarter: 2013Q1

REPORT INFORMATION
  Report Type: Spontaneous
  Country: GB (occurrence: GB)
  Receive Date: 20130227
  Receipt Date: 20130227
  Transmission Date: 20140127
  Serious: Yes (Other)
  Sender: FDA-Public Use
  Company Number: PHFR2004GB01074

PATIENT
  Sex: Female

DRUGS (1)
  1. CLOZARIL [Suspect]
     Indication: SCHIZOPHRENIA
     Dosage: 300 MG, PER DAY
     Route: 048

REACTIONS (3)
  - Bundle branch block left [Unknown]
  - Dizziness [Unknown]
  - Electrocardiogram change [Unknown]
